FAERS Safety Report 24732934 (Version 1)
Quarter: 2024Q4

REPORT INFORMATION
  Report Type: Spontaneous
  Country: GB (occurrence: GB)
  Receive Date: 20241213
  Receipt Date: 20241213
  Transmission Date: 20250114
  Serious: Yes (Disabling, Other)
  Sender: ABBVIE
  Company Number: None

PATIENT
  Age: 59 Year
  Sex: Female

DRUGS (2)
  1. CITALOPRAM HYDROBROMIDE [Suspect]
     Active Substance: CITALOPRAM HYDROBROMIDE
     Indication: Depression
     Dosage: 30MG
     Route: 065
     Dates: start: 19820601
  2. BISOPROLOL [Concomitant]
     Active Substance: BISOPROLOL
     Indication: Palpitations
     Dates: start: 20200105

REACTIONS (9)
  - Antidepressant discontinuation syndrome [Not Recovered/Not Resolved]
  - Medication error [Unknown]
  - Dysphemia [Unknown]
  - Cognitive disorder [Unknown]
  - Akathisia [Unknown]
  - Apathy [Unknown]
  - Amnesia [Unknown]
  - Disturbance in attention [Unknown]
  - Disturbance in attention [Unknown]

NARRATIVE: CASE EVENT DATE: 20230815
